FAERS Safety Report 25669994 (Version 2)
Quarter: 2025Q3

REPORT INFORMATION
  Report Type: Spontaneous
  Country: ID (occurrence: ID)
  Receive Date: 20250812
  Receipt Date: 20250814
  Transmission Date: 20251020
  Serious: Yes (Life-Threatening, Hospitalization, Other)
  Sender: PFIZER
  Company Number: ID-MLMSERVICE-20250801-PI599736-00270-1

PATIENT
  Age: 37 Year
  Sex: Female

DRUGS (6)
  1. METHYLPREDNISOLONE [Suspect]
     Active Substance: METHYLPREDNISOLONE
     Dosage: 2 MG, ALTERNATE DAY
  2. AZATHIOPRINE [Concomitant]
     Active Substance: AZATHIOPRINE
     Indication: Systemic lupus erythematosus
     Dosage: 50 MG, 2X/DAY (TWICE DAILY)
  3. CALCIUM [Concomitant]
     Active Substance: CALCIUM
     Dosage: 500 MG, 2X/DAY (TWICE DAILY)
  4. FOLIC ACID [Concomitant]
     Active Substance: FOLIC ACID
     Dosage: 1 MG, DAILY
  5. ASPIRIN [Concomitant]
     Active Substance: ASPIRIN
     Dosage: 80 MG, DAILY
  6. OXYTOCIN [Concomitant]
     Active Substance: OXYTOCIN
     Route: 042

REACTIONS (6)
  - Uterine atony [Recovered/Resolved]
  - Shock haemorrhagic [Recovered/Resolved]
  - Uterine fibrosis [Recovered/Resolved]
  - Uterine disorder [Recovered/Resolved]
  - Vasculitis [Recovered/Resolved]
  - Maternal exposure during pregnancy [Unknown]
